FAERS Safety Report 5887367-2 (Version None)
Quarter: 2008Q3

REPORT INFORMATION
  Report Type: 
  Country: None (occurrence: None)
  Receive Date: 20080918
  Receipt Date: 20080915
  Transmission Date: 20090109
  Serious: Yes (Congenital Anomaly)
  Sender: FDA-Public Use
  Company Number: GB-JNJFOC-20050906033

PATIENT
  Sex: Male
  Weight: 3.56 kg

DRUGS (3)
  1. TOPAMAX [Suspect]
     Indication: DRUG EXPOSURE DURING PREGNANCY
  2. PHENOBARBITONE [Suspect]
     Indication: DRUG EXPOSURE DURING PREGNANCY
  3. LAMOTRIGINE [Suspect]
     Indication: DRUG EXPOSURE DURING PREGNANCY

REACTIONS (1)
  - CLEFT LIP AND PALATE [None]
